FAERS Safety Report 9002872 (Version 3)
Quarter: 2013Q1

REPORT INFORMATION
  Report Type: Spontaneous
  Country: JP (occurrence: None)
  Receive Date: 20121226
  Receipt Date: 20130213
  Transmission Date: 20140127
  Serious: Yes (Hospitalization)
  Sender: FDA-Public Use
  Company Number: AE-SPE-2012-027

PATIENT
  Age: 4 Year
  Sex: Male

DRUGS (4)
  1. MEIACT MS [Suspect]
     Indication: OTITIS MEDIA
     Route: 048
     Dates: start: 20121128, end: 20121202
  2. ANTIBIOTICS- RESISTANT LACTIC ACID BUCTERIAE [Concomitant]
  3. CLOPERASTINE FENDIZOATE [Concomitant]
  4. PRANLUKAST HYDRATE [Concomitant]

REACTIONS (3)
  - Hypoglycaemia [None]
  - Convulsion [None]
  - Altered state of consciousness [None]
